FAERS Safety Report 14909946 (Version 1)
Quarter: 2018Q2

REPORT INFORMATION
  Report Type: Spontaneous
  Country: US (occurrence: US)
  Receive Date: 20180517
  Receipt Date: 20180517
  Transmission Date: 20180711
  Serious: No
  Sender: FDA-Public Use
  Company Number: US-TARO-2017TAR00532

PATIENT
  Sex: Male

DRUGS (2)
  1. TOPICORT [Suspect]
     Active Substance: DESOXIMETASONE
     Dosage: UNK
  2. TOPICORT [Suspect]
     Active Substance: DESOXIMETASONE
     Dosage: UNK
     Route: 047

REACTIONS (2)
  - Accidental exposure to product [Unknown]
  - Eye irritation [Unknown]
